FAERS Safety Report 4952806-8 (Version None)
Quarter: 2006Q1

REPORT INFORMATION
  Report Type: 
  Country: None (occurrence: None)
  Receive Date: 20060324
  Receipt Date: 20060313
  Transmission Date: 20060701
  Serious: Yes (Hospitalization, Other)
  Sender: FDA-Public Use
  Company Number: FR-JNJFOC-20060303103

PATIENT
  Age: 52 Year
  Sex: Male
  Weight: 48 kg

DRUGS (10)
  1. DURAGESIC-100 [Suspect]
     Indication: CANCER PAIN
     Route: 062
  2. CISPLATIN [Suspect]
     Route: 042
  3. CISPLATIN [Suspect]
     Route: 042
  4. CISPLATIN [Suspect]
     Indication: DRUG USE FOR UNKNOWN INDICATION
     Route: 042
  5. CIFLOX [Suspect]
     Indication: DRUG USE FOR UNKNOWN INDICATION
     Route: 048
  6. ROCEPHIN [Suspect]
     Indication: DRUG USE FOR UNKNOWN INDICATION
     Route: 042
  7. PREVISCAN [Concomitant]
     Route: 065
  8. GEMZAR [Concomitant]
     Route: 065
  9. GEMZAR [Concomitant]
     Route: 065
  10. GEMZAR [Concomitant]
     Route: 065

REACTIONS (7)
  - AGITATION [None]
  - CONFUSIONAL STATE [None]
  - DISORIENTATION [None]
  - EPISTAXIS [None]
  - ESCHERICHIA SEPSIS [None]
  - INTERNATIONAL NORMALISED RATIO INCREASED [None]
  - PLATELET COUNT DECREASED [None]
